FAERS Safety Report 17207966 (Version 1)
Quarter: 2019Q4

REPORT INFORMATION
  Report Type: Spontaneous
  Country: DE (occurrence: DE)
  Receive Date: 20191227
  Receipt Date: 20191227
  Transmission Date: 20200122
  Serious: Yes (Hospitalization)
  Sender: FDA-Public Use
  Company Number: DE-MYLANLABS-2019M1127325

PATIENT
  Sex: Female
  Weight: 66 kg

DRUGS (4)
  1. PEGFILGRASTIM [Suspect]
     Active Substance: PEGFILGRASTIM
     Dosage: STRENGTH: 6 MG, 2ST CYCLE
     Dates: start: 20190727, end: 20190727
  2. PEGFILGRASTIM [Suspect]
     Active Substance: PEGFILGRASTIM
     Indication: PRODUCT USED FOR UNKNOWN INDICATION
     Dosage: STRENGTH: 6 MG, 3RD CYCLE
     Dates: start: 20190810, end: 20190810
  3. PEGFILGRASTIM [Suspect]
     Active Substance: PEGFILGRASTIM
     Dosage: STRENGTH: 6 MG, 4TH CYCLE
     Dates: start: 20190824, end: 20190824
  4. PEGFILGRASTIM [Suspect]
     Active Substance: PEGFILGRASTIM
     Dosage: STRENGTH: 6 MG, 1ST CYCLE
     Dates: start: 20190713, end: 20190713

REACTIONS (5)
  - Pneumonia [Unknown]
  - Productive cough [Unknown]
  - Body temperature increased [Unknown]
  - General physical health deterioration [Unknown]
  - Febrile neutropenia [Unknown]

NARRATIVE: CASE EVENT DATE: 20190830
